FAERS Safety Report 25904090 (Version 1)
Quarter: 2025Q4

REPORT INFORMATION
  Report Type: Spontaneous
  Country: US (occurrence: US)
  Receive Date: 20251010
  Receipt Date: 20251010
  Transmission Date: 20260118
  Serious: No
  Sender: ROCHE
  Company Number: US-ROCHE-10000401549

PATIENT
  Age: 31 Year
  Sex: Female
  Weight: 145.15 kg

DRUGS (2)
  1. XOLAIR [Suspect]
     Active Substance: OMALIZUMAB
     Indication: Chronic spontaneous urticaria
     Dosage: STRENGTH: 300 MG/2ML?ON 25-SEP-2025, SHE RECEIVED LAST DOSE OF OMALIZUMAB.
     Route: 058
     Dates: start: 2024
  2. XYZAL [Concomitant]
     Active Substance: LEVOCETIRIZINE DIHYDROCHLORIDE
     Indication: Hypersensitivity
     Dosage: AS NEEDED

REACTIONS (5)
  - Accidental exposure to product [Unknown]
  - Device defective [Unknown]
  - Device failure [Unknown]
  - No adverse event [Unknown]
  - Inappropriate schedule of product administration [Unknown]

NARRATIVE: CASE EVENT DATE: 20250926
